FAERS Safety Report 9477823 (Version 2)
Quarter: 2013Q3

REPORT INFORMATION
  Report Type: Spontaneous
  Country: GB (occurrence: None)
  Receive Date: 20130822
  Receipt Date: 20130830
  Transmission Date: 20140515
  Serious: Yes (Hospitalization, Other)
  Sender: FDA-Public Use
  Company Number: AUR-APL-2013-06713

PATIENT
  Age: 4 Month
  Sex: Female

DRUGS (4)
  1. LEVETIRACETAM [Suspect]
     Indication: CONVULSION
     Dosage: 1060 MG (265 MG, 4 IN 1 D), ORAL
     Route: 048
  2. CLOBAZAM (CLOBAZAM) [Concomitant]
  3. PHENOBARBITONE (PHENOBARBITAL) [Concomitant]
  4. VIGABATRIN (VIGABATRIN) [Concomitant]

REACTIONS (2)
  - Convulsion [None]
  - Drug ineffective [None]
